FAERS Safety Report 10356277 (Version 3)
Quarter: 2015Q4

REPORT INFORMATION
  Report Type: Report from Study
  Country: JP (occurrence: JP)
  Receive Date: 20140801
  Receipt Date: 20151019
  Transmission Date: 20160304
  Serious: Yes (Other)
  Sender: FDA-Public Use
  Company Number: JP-009507513-1309JPN007902

PATIENT
  Age: 59 Year
  Sex: Female
  Weight: 42 kg

DRUGS (24)
  1. TEMODAL [Suspect]
     Active Substance: TEMOZOLOMIDE
     Indication: OLIGOASTROCYTOMA
     Dosage: 150 MG/M2, QD
     Route: 048
     Dates: start: 20130225, end: 20130301
  2. RHYTHMY [Suspect]
     Active Substance: RILMAZAFONE HYDROCHLORIDE
     Dosage: DAILY DOSE UNKNOWN ( FORMULATION POR)
     Route: 048
  3. TEMODAL [Suspect]
     Active Substance: TEMOZOLOMIDE
     Dosage: 200 MG/M2, QD
     Route: 048
     Dates: start: 20130929, end: 20131002
  4. MEBENDAZOLE. [Suspect]
     Active Substance: MEBENDAZOLE
     Indication: OLIGOASTROCYTOMA
     Dosage: DAILY DOSE UNKNOWN
     Route: 048
  5. AMOXAN [Suspect]
     Active Substance: AMOXAPINE
     Dosage: DAILY DOSE UNKNOWN
     Route: 048
     Dates: start: 20130124, end: 20130515
  6. KEPPRA [Concomitant]
     Active Substance: LEVETIRACETAM
     Dosage: DAILY DOSE UNKNOWN (FORMULATION POR)
     Route: 048
  7. VALERIN [Concomitant]
     Active Substance: VALPROATE SODIUM
     Dosage: DAILY DOSE UNKNOWN
     Route: 048
     Dates: end: 20130125
  8. NAUZELIN [Concomitant]
     Active Substance: DOMPERIDONE
     Indication: NAUSEA
     Dosage: DAILY DOSE UNKNOWN (FORMULATION POR)
     Route: 048
     Dates: end: 20130701
  9. TEMODAL [Suspect]
     Active Substance: TEMOZOLOMIDE
     Dosage: 200 MG/M2, QD
     Route: 048
     Dates: start: 20130510, end: 20130514
  10. TEMODAL [Suspect]
     Active Substance: TEMOZOLOMIDE
     Dosage: 200 MG/M2, QD
     Route: 048
     Dates: start: 20131028, end: 20131101
  11. BAKTAR [Suspect]
     Active Substance: SULFAMETHOXAZOLE\TRIMETHOPRIM
     Indication: ANTIFUNGAL PROPHYLAXIS
     Dosage: DAILY DOSE UNKNOWN
     Route: 048
     Dates: start: 20130424
  12. TEGRETOL [Concomitant]
     Active Substance: CARBAMAZEPINE
     Dosage: DAILY DOSE UNKNOWN (FORMULATION POR)
     Route: 048
  13. LENDORMIN [Concomitant]
     Active Substance: BROTIZOLAM
     Dosage: DAILY DOSE UNKNOWN (FORMULATION POR)
     Route: 048
  14. CIMETIDINE [Concomitant]
     Active Substance: CIMETIDINE
     Indication: PROPHYLAXIS
     Dosage: DAILY DOSE UNKNOWN (FORMULATION POR)
     Route: 048
  15. TEMODAL [Suspect]
     Active Substance: TEMOZOLOMIDE
     Dosage: 200 MG/M2,  QD
     Route: 048
     Dates: start: 20130423, end: 20130424
  16. TEMODAL [Suspect]
     Active Substance: TEMOZOLOMIDE
     Dosage: 200 MG/M2, QD
     Route: 048
     Dates: start: 20130608, end: 20130612
  17. TEMOZOLOMIDE. [Suspect]
     Active Substance: TEMOZOLOMIDE
     Indication: OLIGOASTROCYTOMA
     Dosage: 150 MG/M2, QD
     Route: 041
     Dates: start: 20130121, end: 20130121
  18. TOLEDOMIN [Suspect]
     Active Substance: MILNACIPRAN HYDROCHLORIDE
     Dosage: DAILY DOSE UNKNOWN
     Route: 048
     Dates: start: 20130516, end: 20130628
  19. REFLEX [Suspect]
     Active Substance: MIRTAZAPINE
     Dosage: DAILY DOSE UNKNOWN
     Route: 048
     Dates: start: 20130702, end: 20130712
  20. TEMODAL [Suspect]
     Active Substance: TEMOZOLOMIDE
     Dosage: 200 MG/M2, QD
     Route: 048
     Dates: start: 20130326, end: 20130330
  21. RESLIN TABLETS 25 [Suspect]
     Active Substance: TRAZODONE HYDROCHLORIDE
     Dosage: DAILY DOSE UNKNOWN
     Route: 048
  22. TEMODAL [Suspect]
     Active Substance: TEMOZOLOMIDE
     Dosage: 200 MG/M2, 1QD
     Route: 048
     Dates: start: 20130831, end: 20130904
  23. LIVALO [Concomitant]
     Active Substance: PITAVASTATIN CALCIUM
     Dosage: DAILY DOSE UNKNOWN
     Route: 048
  24. TEMODAL [Suspect]
     Active Substance: TEMOZOLOMIDE
     Dosage: 200 MG/M2, QD
     Route: 048
     Dates: start: 20131124, end: 20131128

REACTIONS (7)
  - White blood cell count decreased [Recovering/Resolving]
  - Hyperprolactinaemia [Recovered/Resolved]
  - Decreased appetite [Recovered/Resolved]
  - Hepatic function abnormal [Recovering/Resolving]
  - White blood cell count decreased [Recovering/Resolving]
  - Nausea [Recovering/Resolving]
  - Intracranial tumour haemorrhage [Recovered/Resolved]

NARRATIVE: CASE EVENT DATE: 20130122
